FAERS Safety Report 22197046 (Version 1)
Quarter: 2023Q2

REPORT INFORMATION
  Report Type: Report from Study
  Country: CO (occurrence: CO)
  Receive Date: 20230411
  Receipt Date: 20230411
  Transmission Date: 20230722
  Serious: Yes (Death)
  Sender: FDA-Public Use
  Company Number: CO-ABBVIE-4723298

PATIENT
  Age: 77 Year
  Sex: Male

DRUGS (1)
  1. VENCLEXTA [Suspect]
     Active Substance: VENETOCLAX
     Indication: Acute myeloid leukaemia
     Dosage: STRENGTH 100 MILLIGRAM
     Route: 048
     Dates: start: 20230217, end: 20230322

REACTIONS (2)
  - Renal failure [Fatal]
  - Septic shock [Fatal]

NARRATIVE: CASE EVENT DATE: 20230301
